FAERS Safety Report 19974535 (Version 2)
Quarter: 2021Q4

REPORT INFORMATION
  Report Type: Spontaneous
  Country: CA (occurrence: CA)
  Receive Date: 20211020
  Receipt Date: 20211111
  Transmission Date: 20220304
  Serious: Yes (Other)
  Sender: FDA-Public Use
  Company Number: CA-PFIZER INC-202101341473

PATIENT
  Age: 86 Year
  Sex: Female

DRUGS (4)
  1. EUCRISA [Suspect]
     Active Substance: CRISABOROLE
     Indication: Eczema
     Dosage: 2 % 60 GM
     Dates: start: 20210915
  2. PFIZER-BIONTECH COVID-19 VACCINE [Concomitant]
     Active Substance: TOZINAMERAN
     Dosage: UNK (DOSE 1)
     Route: 030
     Dates: start: 20210903, end: 20210903
  3. PFIZER-BIONTECH COVID-19 VACCINE [Concomitant]
     Active Substance: TOZINAMERAN
     Dosage: UNK (DOSE 2)
     Route: 030
     Dates: start: 20211001, end: 20211001
  4. ATENOLOL [Concomitant]
     Active Substance: ATENOLOL
     Indication: Hypertension
     Dosage: UNK
     Dates: start: 1985

REACTIONS (9)
  - Hypertension [Unknown]
  - Application site pain [Unknown]
  - Fall [Unknown]
  - Inflammation [Unknown]
  - Pain [Recovered/Resolved]
  - Skin discolouration [Unknown]
  - Application site pruritus [Unknown]
  - Swelling face [Unknown]
  - Swelling of eyelid [Unknown]
